FAERS Safety Report 20446940 (Version 1)
Quarter: 2022Q1

REPORT INFORMATION
  Report Type: Spontaneous
  Country: FR (occurrence: FR)
  Receive Date: 20220208
  Receipt Date: 20220208
  Transmission Date: 20220423
  Serious: Yes (Death, Congenital Anomaly, Other)
  Sender: FDA-Public Use
  Company Number: FR-GILEAD-2021-0562443

PATIENT
  Age: 27 Week

DRUGS (3)
  1. EMTRICITABINE\TENOFOVIR [Suspect]
     Active Substance: EMTRICITABINE\TENOFOVIR
     Indication: HIV infection
     Dosage: UNK
     Route: 064
  2. PREZISTA [Suspect]
     Active Substance: DARUNAVIR ETHANOLATE
     Indication: HIV infection
     Dosage: 800 MILLIGRAM, ONCE A DAY(800 MG, QD)
     Route: 064
  3. NORVIR [Suspect]
     Active Substance: RITONAVIR
     Indication: HIV infection
     Dosage: 100 MILLIGRAM, ONCE A DAY(100 MG, QD)
     Route: 064

REACTIONS (7)
  - Foetal malformation [Fatal]
  - Rib hypoplasia [Unknown]
  - Rib synostosis [Unknown]
  - Spondyloepiphyseal dysplasia [Unknown]
  - Hemivertebra [Unknown]
  - Block vertebra [Unknown]
  - Foetal exposure during pregnancy [Recovered/Resolved]

NARRATIVE: CASE EVENT DATE: 20210329
